FAERS Safety Report 8789266 (Version 1)
Quarter: 2012Q4

REPORT INFORMATION
  Report Type: Spontaneous
  Country: US (occurrence: None)
  Receive Date: 20120904
  Receipt Date: 20120904
  Transmission Date: 20130627
  Serious: Yes (Other)
  Sender: FDA-Public Use
  Company Number: A0991409A

PATIENT
  Sex: Female

DRUGS (1)
  1. CALCIUM CARBONATE (FORMULATION UNKNOWN) (CALCIUM CARBONATE) [Suspect]
     Indication: PRODUCT  USED FOR UNKNOWN INDICATION

REACTIONS (1)
  - Dependence [None]
